FAERS Safety Report 7601525-8 (Version None)
Quarter: 2011Q3

REPORT INFORMATION
  Report Type: 
  Country: None (occurrence: None)
  Receive Date: 20110711
  Receipt Date: 20110627
  Transmission Date: 20111222
  Serious: Yes (Hospitalization, Other)
  Sender: FDA-Public Use
  Company Number: PHHY2011BR57403

PATIENT
  Sex: Male

DRUGS (1)
  1. DIOVAN HCT [Suspect]
     Dosage: 80 MG OF VALSARTAN AND 12.5 MG OF HYDROCHLOROTHIAZIDE

REACTIONS (2)
  - DYSKINESIA [None]
  - CEREBROVASCULAR ACCIDENT [None]
